FAERS Safety Report 12737314 (Version 1)
Quarter: 2016Q3

REPORT INFORMATION
  Report Type: Spontaneous
  Country: SE (occurrence: SE)
  Receive Date: 20160912
  Receipt Date: 20160912
  Transmission Date: 20161109
  Serious: Yes (Other)
  Sender: FDA-Public Use
  Company Number: SE-ABBVIE-12P-150-0935361-00

PATIENT
  Sex: Female

DRUGS (6)
  1. ERGENYL RETARD [Suspect]
     Active Substance: VALPROIC ACID
     Dosage: TABLET, EXTENDED RELEASE
     Route: 048
     Dates: start: 1997
  2. IKTORIVIL [Suspect]
     Active Substance: CLONAZEPAM
     Indication: EPILEPSY
     Route: 048
     Dates: end: 20100417
  3. IKTORIVIL [Suspect]
     Active Substance: CLONAZEPAM
     Route: 048
     Dates: start: 1997
  4. ERGENYL RETARD [Suspect]
     Active Substance: VALPROIC ACID
     Indication: EPILEPSY
     Dosage: 4 DOSAGE FORM;DAILY, TABLET, EXTENDED RELEASE
     Route: 048
     Dates: end: 20100417
  5. ERGENYL RETARD [Suspect]
     Active Substance: VALPROIC ACID
     Dosage: EXTENDED RELEASE
     Route: 048
  6. IKTORIVIL [Suspect]
     Active Substance: CLONAZEPAM
     Route: 048

REACTIONS (2)
  - Exposure during pregnancy [Unknown]
  - Pre-eclampsia [Unknown]
